FAERS Safety Report 5472755-9 (Version None)
Quarter: 2007Q4

REPORT INFORMATION
  Report Type: 
  Country: None (occurrence: None)
  Receive Date: 20071001
  Receipt Date: 20070924
  Transmission Date: 20080405
  Serious: Yes (Other)
  Sender: FDA-Public Use
  Company Number: AU-AVENTIS-200718821GDDC

PATIENT
  Age: 63 Year
  Sex: Female

DRUGS (7)
  1. ARAVA [Suspect]
     Indication: RHEUMATOID ARTHRITIS
     Route: 048
     Dates: start: 20050811
  2. METHOTREXATE [Concomitant]
     Dosage: DOSE: UNK
  3. CELECOXIB [Concomitant]
     Dosage: DOSE: UNK
  4. DIAMICRON [Concomitant]
     Dosage: DOSE: UNK
  5. DIAFORMIN [Concomitant]
     Dosage: DOSE: UNK
  6. EFEXOR                             /01233802/ [Concomitant]
     Dosage: DOSE: UNK
  7. LIPITOR [Concomitant]
     Dosage: DOSE: UNK

REACTIONS (5)
  - BLOOD GLUCOSE INCREASED [None]
  - DRY EYE [None]
  - FATIGUE [None]
  - MUCOSAL DRYNESS [None]
  - SJOGREN'S SYNDROME [None]
